FAERS Safety Report 13715349 (Version 2)
Quarter: 2017Q3

REPORT INFORMATION
  Report Type: Spontaneous
  Country: DK (occurrence: DK)
  Receive Date: 20170704
  Receipt Date: 20170706
  Transmission Date: 20171127
  Serious: Yes (Other)
  Sender: FDA-Public Use
  Company Number: DK-TEVA-782035ISR

PATIENT
  Age: 47 Year
  Sex: Male

DRUGS (2)
  1. QUETIAPIN ACTAVIS [Suspect]
     Active Substance: QUETIAPINE
     Indication: INSOMNIA
     Dosage: 100 MILLIGRAM DAILY; NOCTE
     Dates: start: 2016
  2. SERTRALIN TEVA [Concomitant]
     Dates: start: 2016

REACTIONS (4)
  - Dyspnoea [Unknown]
  - Dyspnoea exertional [Unknown]
  - Bicuspid aortic valve [Unknown]
  - Burning sensation [Unknown]

NARRATIVE: CASE EVENT DATE: 201704
